FAERS Safety Report 24911462 (Version 3)
Quarter: 2025Q3

REPORT INFORMATION
  Report Type: Report from Study
  Country: US (occurrence: US)
  Receive Date: 20250131
  Receipt Date: 20250803
  Transmission Date: 20251020
  Serious: Yes (Other)
  Sender: ALEXION PHARMACEUTICALS
  Company Number: US-AstraZeneca-CH-00792888A

PATIENT
  Sex: Female
  Weight: 76.19 kg

DRUGS (2)
  1. BENRALIZUMAB [Suspect]
     Active Substance: BENRALIZUMAB
     Indication: Asthma
     Dosage: 30 MILLIGRAM, Q8W
  2. REZDIFFRA [Suspect]
     Active Substance: RESMETIROM
     Route: 065

REACTIONS (2)
  - Hiatus hernia [Recovered/Resolved]
  - Weight decreased [Recovered/Resolved]
